FAERS Safety Report 7131889-3 (Version None)
Quarter: 2010Q4

REPORT INFORMATION
  Report Type: 
  Country: None (occurrence: None)
  Receive Date: 20101202
  Receipt Date: 20101118
  Transmission Date: 20110411
  Serious: Yes (Hospitalization)
  Sender: FDA-Public Use
  Company Number: US-RB-015677-10

PATIENT
  Age: 66 Year
  Sex: Female

DRUGS (2)
  1. MUCINEX [Suspect]
     Indication: INCREASED UPPER AIRWAY SECRETION
     Dosage: PATIENT TOOK ONE TABLET ONCE OR TWICE DAILY
     Route: 048
  2. MUCINEX [Suspect]
     Indication: CHRONIC OBSTRUCTIVE PULMONARY DISEASE
     Dosage: NOT USING EVERY DAY
     Route: 048

REACTIONS (8)
  - CHEST DISCOMFORT [None]
  - DIZZINESS [None]
  - DYSPNOEA [None]
  - HEADACHE [None]
  - HYPERSENSITIVITY [None]
  - INCORRECT DRUG ADMINISTRATION DURATION [None]
  - OEDEMA PERIPHERAL [None]
  - SWELLING FACE [None]
